FAERS Safety Report 8298805-2 (Version None)
Quarter: 2012Q1

REPORT INFORMATION
  Report Type: 
  Country: None (occurrence: None)
  Receive Date: 20120323
  Receipt Date: 20090505
  Transmission Date: 20120608
  Serious: Yes (Other)
  Sender: FDA-Public Use
  Company Number: PHEH2009US04460

PATIENT
  Age: 40 Year
  Sex: Male

DRUGS (6)
  1. PULMOZYME [Concomitant]
  2. ZITHROMAX [Concomitant]
  3. PANCREATIC ENZYMES (PANCRELIPASE) [Concomitant]
  4. ALBUTEROL [Concomitant]
  5. VICODIN (HYDOCODONE BITARTRATE, PARACETAMOL) [Concomitant]
  6. TOBI [Suspect]
     Indication: CYSTIC FIBROSIS
     Dosage: NIHALATION
     Route: 055
     Dates: start: 20000101, end: 20040101

REACTIONS (1)
  - HAEMOPTYSIS [None]
